FAERS Safety Report 11763848 (Version 1)
Quarter: 2015Q4

REPORT INFORMATION
  Report Type: Spontaneous
  Country: US (occurrence: US)
  Receive Date: 20151120
  Receipt Date: 20151120
  Transmission Date: 20160304
  Serious: No
  Sender: FDA-Public Use
  Company Number: US-ELI_LILLY_AND_COMPANY-US201304007102

PATIENT
  Sex: Female

DRUGS (2)
  1. FORTEO [Suspect]
     Active Substance: TERIPARATIDE
     Indication: BONE DISORDER
     Dosage: 20 UG, QD
     Dates: start: 201303
  2. FORTEO [Suspect]
     Active Substance: TERIPARATIDE
     Dosage: 20 UG, QD
     Dates: start: 20130419

REACTIONS (10)
  - Pyrexia [Unknown]
  - Photosensitivity reaction [Unknown]
  - Malaise [Unknown]
  - Headache [Unknown]
  - Nausea [Not Recovered/Not Resolved]
  - Sunburn [Unknown]
  - Erythema [Unknown]
  - Chills [Unknown]
  - Peripheral swelling [Unknown]
  - Abdominal pain upper [Not Recovered/Not Resolved]
